FAERS Safety Report 4842381-0 (Version None)
Quarter: 2005Q4

REPORT INFORMATION
  Report Type: 
  Country: None (occurrence: None)
  Receive Date: 20051125
  Receipt Date: 20051112
  Transmission Date: 20060501
  Serious: Yes (Hospitalization, Other)
  Sender: FDA-Public Use
  Company Number: 2005154751

PATIENT
  Age: 71 Year
  Sex: Female

DRUGS (4)
  1. DILANTIN [Suspect]
     Indication: ILL-DEFINED DISORDER
  2. LYRICA [Suspect]
     Indication: TRIGEMINAL NEURALGIA
     Dosage: 150 MG (50 MG, 3 IN 1 D)
     Dates: start: 20051110, end: 20051111
  3. ACTONEL [Suspect]
     Indication: ILL-DEFINED DISORDER
  4. ALL OTHER THERAPEUTIC PRODUCTS (ALL OTHER THERAPEUTIC PRODUCTS) [Concomitant]

REACTIONS (19)
  - ABASIA [None]
  - AGITATION [None]
  - BLOOD POTASSIUM DECREASED [None]
  - COMA [None]
  - DRUG HYPERSENSITIVITY [None]
  - DYSKINESIA [None]
  - FACIAL PAIN [None]
  - FEELING ABNORMAL [None]
  - INAPPROPRIATE SCHEDULE OF DRUG ADMINISTRATION [None]
  - INSOMNIA [None]
  - MUSCLE SPASMS [None]
  - NERVOUSNESS [None]
  - ORAL INTAKE REDUCED [None]
  - PARANOIA [None]
  - SPEECH DISORDER [None]
  - SPINAL OSTEOARTHRITIS [None]
  - TREMOR [None]
  - TRIGEMINAL NEURALGIA [None]
  - WEIGHT DECREASED [None]
